FAERS Safety Report 7469363-7 (Version None)
Quarter: 2011Q2

REPORT INFORMATION
  Report Type: 
  Country: None (occurrence: None)
  Receive Date: 20110510
  Receipt Date: 20110324
  Transmission Date: 20111010
  Serious: Yes (Hospitalization, Other)
  Sender: FDA-Public Use
  Company Number: US-BAYER-201038671NA

PATIENT
  Age: 20 Year
  Sex: Female
  Weight: 86 kg

DRUGS (6)
  1. PAROXETINE HCL [Concomitant]
     Dosage: 20 MG, UNK
  2. SUDAFED 12 HOUR [Concomitant]
     Dosage: 120 MG, UNK
  3. IBUPROFEN [Concomitant]
     Dosage: 300 MG, UNK
  4. DEPO-PROVERA [Concomitant]
     Dosage: UNK
     Dates: start: 20090103, end: 20100201
  5. YAZ [Suspect]
     Route: 048
     Dates: start: 20080501, end: 20090101
  6. ZOLOFT [Concomitant]
     Dosage: UNK
     Dates: start: 20090101, end: 20090101

REACTIONS (6)
  - CHOLECYSTITIS ACUTE [None]
  - CHOLELITHIASIS [None]
  - GALLBLADDER INJURY [None]
  - ABDOMINAL PAIN UPPER [None]
  - NAUSEA [None]
  - VOMITING [None]
